FAERS Safety Report 4655378-0 (Version None)
Quarter: 2005Q2

REPORT INFORMATION
  Report Type: 
  Country: None (occurrence: None)
  Receive Date: 20050505
  Receipt Date: 20050418
  Transmission Date: 20051028
  Serious: Yes (Death)
  Sender: FDA-Public Use
  Company Number: USA050496236

PATIENT
  Age: 72 Year
  Sex: Male

DRUGS (3)
  1. CYMBALTA [Suspect]
     Indication: DIABETIC NEUROPATHY
     Dosage: 120 MG/1 DAY
  2. CYMBALTA [Suspect]
     Indication: NEUROPATHIC PAIN
     Dosage: 120 MG/1 DAY
  3. SEROQUEL [Concomitant]

REACTIONS (1)
  - DEATH [None]
